FAERS Safety Report 24342377 (Version 1)
Quarter: 2024Q3

REPORT INFORMATION
  Report Type: Spontaneous
  Country: US (occurrence: US)
  Receive Date: 20240920
  Receipt Date: 20240920
  Transmission Date: 20241017
  Serious: No
  Sender: STRIDES
  Company Number: US-STRIDES ARCOLAB LIMITED-2024SP008664

PATIENT
  Age: 73 Year
  Sex: Female

DRUGS (5)
  1. PREGABALIN [Suspect]
     Active Substance: PREGABALIN
     Indication: Central pain syndrome
     Dosage: 50 MILLIGRAM, BID
     Route: 065
  2. OXYCODONE [Suspect]
     Active Substance: OXYCODONE
     Indication: Central pain syndrome
     Dosage: 5 MILLIGRAM, EVERY 4 HRS
     Route: 065
  3. GABAPENTIN [Suspect]
     Active Substance: GABAPENTIN
     Indication: Central pain syndrome
     Dosage: UNK
     Route: 065
  4. AMITRIPTYLINE [Suspect]
     Active Substance: AMITRIPTYLINE
     Indication: Central pain syndrome
     Dosage: UNK
     Route: 065
  5. DULOXETINE [Suspect]
     Active Substance: DULOXETINE
     Indication: Central pain syndrome
     Dosage: UNK
     Route: 065

REACTIONS (4)
  - Memory impairment [Unknown]
  - Dizziness [Unknown]
  - Therapy partial responder [Unknown]
  - Off label use [Unknown]
